FAERS Safety Report 4362280-0 (Version None)
Quarter: 2004Q2

REPORT INFORMATION
  Report Type: 
  Country: None (occurrence: None)
  Receive Date: 20040517
  Receipt Date: 20040505
  Transmission Date: 20050107
  Serious: Yes (Life-Threatening, Hospitalization)
  Sender: FDA-Public Use
  Company Number: K200400682

PATIENT
  Age: 55 Year
  Sex: Male

DRUGS (5)
  1. ALTACE [Suspect]
     Indication: HYPERTENSION
     Dosage: 2 MG, QD, ORAL
     Route: 048
     Dates: end: 20040415
  2. ALTACE [Suspect]
     Indication: HYPERTENSION
     Dosage: 2 MG, QD, ORAL
     Route: 048
     Dates: start: 20010101
  3. AMLODIPINE (AMLODIPINE) 10 MG [Suspect]
     Indication: HYPERTENSION
     Dosage: 10 MG, QD, ORAL
     Route: 048
     Dates: start: 20010101, end: 20040415
  4. BRICANYL [Concomitant]
  5. IPRATROPIUM BROMIDE [Concomitant]

REACTIONS (3)
  - HOARSENESS [None]
  - SWOLLEN TONGUE [None]
  - WHEEZING [None]
